FAERS Safety Report 16932804 (Version 1)
Quarter: 2019Q4

REPORT INFORMATION
  Report Type: Spontaneous
  Country: US (occurrence: US)
  Receive Date: 20191018
  Receipt Date: 20191018
  Transmission Date: 20200122
  Serious: No
  Sender: FDA-Public Use
  Company Number: US-DRREDDYS-USA/USA/19/0115133

PATIENT
  Age: 60 Year
  Sex: Female
  Weight: 77 kg

DRUGS (2)
  1. PREGABALIN. [Suspect]
     Active Substance: PREGABALIN
     Indication: SPINAL STENOSIS
     Dosage: 50 MG IN NIGHT
     Route: 048
     Dates: start: 20190812
  2. PREGABALIN. [Suspect]
     Active Substance: PREGABALIN
     Indication: FIBROMYALGIA
     Dosage: 25 MG IN MORNING
     Route: 048
     Dates: start: 20190812

REACTIONS (3)
  - Product quality issue [Unknown]
  - Drug ineffective [Not Recovered/Not Resolved]
  - Product substitution issue [Unknown]

NARRATIVE: CASE EVENT DATE: 20190812
